FAERS Safety Report 21972756 (Version 4)
Quarter: 2023Q2

REPORT INFORMATION
  Report Type: Spontaneous
  Country: IN (occurrence: IN)
  Receive Date: 20230209
  Receipt Date: 20230503
  Transmission Date: 20230722
  Serious: Yes (Other)
  Sender: FDA-Public Use
  Company Number: IN-PFIZER INC-PV202200031187

PATIENT
  Age: 49 Year
  Sex: Male

DRUGS (11)
  1. LORLATINIB [Suspect]
     Active Substance: LORLATINIB
     Dosage: 100 MG, ONCE DAILY FOR 2 MONTHS
     Route: 048
     Dates: start: 20220309
  2. ZOLEDRONIC ACID [Concomitant]
     Active Substance: ZOLEDRONIC ACID
     Dosage: UNK
  3. ZOLEDRONIC ACID [Concomitant]
     Active Substance: ZOLEDRONIC ACID
     Dosage: 3 MG
  4. GABAPIN NT [Concomitant]
     Dosage: (100/10MG) AT NIGHT FOR 1 MONTH
  5. THYROXINE [Concomitant]
     Active Substance: LEVOTHYROXINE
     Dosage: 25 UG, OD EMPTY STOMACH FOR 1 MONTH
  6. ROSUVASTATIN [Concomitant]
     Active Substance: ROSUVASTATIN
     Dosage: 5 MG, AT NIGHT FOR 1 MONTH
  7. SOFTOVAC POWDER [Concomitant]
     Dosage: 2 SPOON WITH WATER BD
  8. ULTRACET [Concomitant]
     Active Substance: ACETAMINOPHEN\TRAMADOL HYDROCHLORIDE
     Indication: Pain
     Dosage: 1 SOS
  9. SYNERGY PLUS [Concomitant]
     Dosage: UNK, 1X/DAY FOR 1 MONTH
  10. LEVEPIL [Concomitant]
     Dosage: 250 MG BD FOR 1 MONTH
  11. DEXAMETHASONE [Concomitant]
     Active Substance: DEXAMETHASONE
     Dosage: 1MG OD FOR 30 DAYS

REACTIONS (7)
  - Neuropathy peripheral [Unknown]
  - Brain oedema [Unknown]
  - Blood thyroid stimulating hormone increased [Not Recovered/Not Resolved]
  - Blood cholesterol increased [Unknown]
  - Neoplasm progression [Unknown]
  - Balance disorder [Unknown]
  - Anaemia [Unknown]

NARRATIVE: CASE EVENT DATE: 20220501
